FAERS Safety Report 7747512-0 (Version None)
Quarter: 2011Q3

REPORT INFORMATION
  Report Type: 
  Country: None (occurrence: None)
  Receive Date: 20110913
  Receipt Date: 20110908
  Transmission Date: 20111222
  Serious: Yes (Death)
  Sender: FDA-Public Use
  Company Number: TN-SANOFI-AVENTIS-2011SA058478

PATIENT
  Age: 80 Year
  Sex: Male

DRUGS (5)
  1. PLAVIX [Suspect]
     Indication: STENT PLACEMENT
     Route: 048
     Dates: start: 20100729, end: 20110720
  2. ASPEGIC 325 [Concomitant]
     Route: 048
     Dates: start: 20100729, end: 20110808
  3. TENSOPRIL [Concomitant]
     Route: 048
     Dates: start: 20100729, end: 20110808
  4. ALDACTONE [Concomitant]
     Route: 048
     Dates: start: 20100729, end: 20110808
  5. PLAVIX [Suspect]
     Indication: ACUTE CORONARY SYNDROME
     Route: 048
     Dates: start: 20100729, end: 20110720

REACTIONS (3)
  - JAUNDICE [None]
  - HEPATIC NEOPLASM MALIGNANT [None]
  - FAECES DISCOLOURED [None]
